FAERS Safety Report 5996743-9 (Version None)
Quarter: 2008Q4

REPORT INFORMATION
  Report Type: 
  Country: None (occurrence: None)
  Receive Date: 20081212
  Receipt Date: 20081023
  Transmission Date: 20090506
  Serious: No
  Sender: FDA-Public Use
  Company Number: US-ABBOTT-08P-163-0483559-00

PATIENT
  Sex: Female
  Weight: 55.388 kg

DRUGS (2)
  1. HUMIRA [Suspect]
     Indication: RHEUMATOID ARTHRITIS
     Route: 058
     Dates: start: 20071001
  2. FLU VACCINE [Suspect]
     Indication: INFLUENZA IMMUNISATION
     Route: 050
     Dates: start: 20081016, end: 20081016

REACTIONS (3)
  - CHILLS [None]
  - HEADACHE [None]
  - PAIN [None]
